FAERS Safety Report 17069873 (Version 1)
Quarter: 2019Q4

REPORT INFORMATION
  Report Type: Spontaneous
  Country: GB (occurrence: GB)
  Receive Date: 20191125
  Receipt Date: 20191125
  Transmission Date: 20200122
  Serious: Yes (Other)
  Sender: FDA-Public Use
  Company Number: GB-TEVA-2019-GB-1140334

PATIENT
  Age: 75 Year
  Sex: Male
  Weight: 100 kg

DRUGS (4)
  1. RIVAROXABAN [Concomitant]
     Active Substance: RIVAROXABAN
     Dosage: UNTIL SCAN RESULT, THEN AS..., 2 DOSAGE FORMS 1 DAYS
     Dates: start: 20190806, end: 20190813
  2. NITROFURANTOIN. [Suspect]
     Active Substance: NITROFURANTOIN
     Dosage: 200 MG 1 DAYS
     Dates: start: 20191015
  3. TRIMETHOPRIM. [Concomitant]
     Active Substance: TRIMETHOPRIM
     Dosage: 2 DOSAGE FORMS 1 DAYS
     Dates: start: 20190823, end: 20190830
  4. SIMVASTATIN. [Concomitant]
     Active Substance: SIMVASTATIN
     Indication: BLOOD CHOLESTEROL INCREASED
     Dosage: AT NIGHT , 1 DOSAGE FORMS 1 DAYS
     Dates: start: 20190219

REACTIONS (2)
  - Rash [Recovered/Resolved]
  - Headache [Unknown]
